FAERS Safety Report 25842919 (Version 1)
Quarter: 2025Q3

REPORT INFORMATION
  Report Type: Spontaneous
  Country: US (occurrence: US)
  Receive Date: 20250924
  Receipt Date: 20250924
  Transmission Date: 20251020
  Serious: No
  Sender: PFIZER
  Company Number: US-PFIZER INC-202500188746

PATIENT
  Age: 15 Year
  Sex: Female
  Weight: 77.11 kg

DRUGS (2)
  1. GENOTROPIN [Suspect]
     Active Substance: SOMATROPIN
     Indication: Prader-Willi syndrome
     Dosage: 1.6 MG, 1X/DAY
     Route: 030
  2. METFORMIN [Concomitant]
     Active Substance: METFORMIN HYDROCHLORIDE
     Indication: Glucose tolerance impaired
     Dosage: 250 MG, 1X/DAY
     Route: 048
     Dates: start: 202209

REACTIONS (2)
  - Device issue [Unknown]
  - Product dose omission issue [Unknown]
